FAERS Safety Report 9179477 (Version 1)
Quarter: 2013Q1

REPORT INFORMATION
  Report Type: Spontaneous
  Country: CA (occurrence: CA)
  Receive Date: 20130321
  Receipt Date: 20130321
  Transmission Date: 20140127
  Serious: Yes (Other)
  Sender: FDA-Public Use
  Company Number: CA-WATSON-2013-04202

PATIENT
  Sex: Female

DRUGS (1)
  1. GELNIQUE-CANADA (WATSON LABORATORIES) [Suspect]
     Indication: URGE INCONTINENCE
     Dosage: UNK, DAILY
     Route: 061
     Dates: start: 201301

REACTIONS (4)
  - Amnesia [Recovered/Resolved]
  - Confusional state [Recovered/Resolved]
  - Somnolence [Recovered/Resolved]
  - Dissociation [Recovered/Resolved]
